FAERS Safety Report 6048321-3 (Version None)
Quarter: 2009Q1

REPORT INFORMATION
  Report Type: 
  Country: None (occurrence: None)
  Receive Date: 20090123
  Receipt Date: 20090113
  Transmission Date: 20090719
  Serious: Yes (Hospitalization)
  Sender: FDA-Public Use
  Company Number: FR-PFIZER INC-2009155924

PATIENT

DRUGS (6)
  1. SALAZOPYRIN [Suspect]
     Indication: PSORIATIC ARTHROPATHY
     Dosage: UNK
     Route: 048
     Dates: end: 20080803
  2. CALCIFEDIOL [Concomitant]
  3. LEVOTHYROXINE SODIUM [Concomitant]
  4. GINKGO BILOBA EXTRACT [Concomitant]
  5. RANITIDINE HYDROCHLORIDE [Concomitant]
  6. PARACETAMOL [Concomitant]

REACTIONS (2)
  - FACIAL PALSY [None]
  - KERATITIS HERPETIC [None]
